FAERS Safety Report 13620061 (Version 4)
Quarter: 2017Q3

REPORT INFORMATION
  Report Type: Spontaneous
  Country: JP (occurrence: JP)
  Receive Date: 20170607
  Receipt Date: 20170713
  Transmission Date: 20171127
  Serious: Yes (Other)
  Sender: FDA-Public Use
  Company Number: PHJP2017JP017809

PATIENT
  Age: 69 Year
  Sex: Female

DRUGS (3)
  1. GLANATEC [Suspect]
     Active Substance: RIPASUDIL HYDROCHLORIDE DIHYDRATE
     Dosage: 1 GTT, BID
     Route: 047
     Dates: start: 20160927, end: 20170526
  2. AZORGA COMBINATION OPHTHALMIC SUSPENSION [Suspect]
     Active Substance: BRINZOLAMIDE\TIMOLOL MALEATE
     Indication: GLAUCOMA
     Dosage: 1 GTT, BID
     Route: 047
     Dates: start: 20151211, end: 20170526
  3. GLANATEC [Suspect]
     Active Substance: RIPASUDIL HYDROCHLORIDE DIHYDRATE
     Indication: GLAUCOMA
     Dosage: 1 GTT, BID
     Route: 047
     Dates: start: 20151211, end: 20170526

REACTIONS (3)
  - Glaucoma [Recovering/Resolving]
  - Blepharitis [Recovered/Resolved]
  - Visual impairment [Unknown]

NARRATIVE: CASE EVENT DATE: 201605
